FAERS Safety Report 5442314-2 (Version None)
Quarter: 2007Q3

REPORT INFORMATION
  Report Type: 
  Country: None (occurrence: None)
  Receive Date: 20070904
  Receipt Date: 20070823
  Transmission Date: 20080115
  Serious: Yes (Other)
  Sender: FDA-Public Use
  Company Number: CH-PFIZER INC-2007070202

PATIENT
  Sex: Male

DRUGS (2)
  1. NORVASC [Suspect]
     Indication: ESSENTIAL HYPERTENSION
     Route: 048
  2. CO-RENITEN [Suspect]
     Indication: ESSENTIAL HYPERTENSION
     Route: 048
     Dates: start: 20051210, end: 20060115

REACTIONS (4)
  - DRUG EXPOSURE DURING PREGNANCY [None]
  - FOETAL GROWTH RETARDATION [None]
  - FORCEPS DELIVERY [None]
  - OLIGOHYDRAMNIOS [None]
